FAERS Safety Report 18780350 (Version 2)
Quarter: 2021Q1

REPORT INFORMATION
  Report Type: Spontaneous
  Country: JP (occurrence: JP)
  Receive Date: 20210125
  Receipt Date: 20210305
  Transmission Date: 20210419
  Serious: Yes (Hospitalization)
  Sender: FDA-Public Use
  Company Number: JP-ROCHE-2756403

PATIENT
  Age: 79 Year
  Sex: Male

DRUGS (2)
  1. TECENTRIQ [Suspect]
     Active Substance: ATEZOLIZUMAB
     Indication: HEPATOCELLULAR CARCINOMA
     Dosage: AMOUNT OF ONCE ADMINISTRATION: 1200 (UNIT UNCERTAINTY)
     Route: 041
     Dates: start: 20201208, end: 20210108
  2. AVASTIN [Suspect]
     Active Substance: BEVACIZUMAB
     Indication: HEPATOCELLULAR CARCINOMA
     Dosage: AMOUNT OF ONCE ADMINISTRATION: 15 (UNIT UNCERTAINTY)?ON 08/JAN/2021, MOST RECENT DOSE
     Route: 041
     Dates: start: 20201208

REACTIONS (1)
  - Myocarditis [Recovered/Resolved]

NARRATIVE: CASE EVENT DATE: 20210108
